FAERS Safety Report 18761488 (Version 2)
Quarter: 2021Q1

REPORT INFORMATION
  Report Type: Spontaneous
  Country: US (occurrence: US)
  Receive Date: 20210120
  Receipt Date: 20210204
  Transmission Date: 20210419
  Serious: Yes (Hospitalization, Other)
  Sender: FDA-Public Use
  Company Number: US-JNJFOC-20210122384

PATIENT
  Age: 25 Year
  Sex: Male
  Weight: 99.88 kg

DRUGS (4)
  1. INVEGA SUSTENNA [Suspect]
     Active Substance: PALIPERIDONE PALMITATE
  2. INVEGA SUSTENNA [Suspect]
     Active Substance: PALIPERIDONE PALMITATE
     Indication: SCHIZOPHRENIA
     Route: 030
  3. INVEGA [Suspect]
     Active Substance: PALIPERIDONE
     Indication: SCHIZOPHRENIA
     Route: 048
  4. INVEGA SUSTENNA [Suspect]
     Active Substance: PALIPERIDONE PALMITATE

REACTIONS (8)
  - Tardive dyskinesia [Unknown]
  - Drug abuse [Unknown]
  - Psychotic disorder [Unknown]
  - Alcohol abuse [Unknown]
  - Treatment noncompliance [Unknown]
  - Communication disorder [Unknown]
  - Erectile dysfunction [Unknown]
  - Drug ineffective [Unknown]
